FAERS Safety Report 5705308-5 (Version None)
Quarter: 2008Q2

REPORT INFORMATION
  Report Type: 
  Country: None (occurrence: None)
  Receive Date: 20080415
  Receipt Date: 20080402
  Transmission Date: 20081010
  Serious: Yes (Hospitalization, Other)
  Sender: FDA-Public Use
  Company Number: GB-RANBAXY-2008RR-13527

PATIENT

DRUGS (14)
  1. ALBUTEROL [Suspect]
     Indication: RESPIRATORY RATE DECREASED
     Route: 065
  2. ALBUTEROL [Suspect]
     Route: 055
  3. ETOMIDATE [Concomitant]
     Dosage: 20 MG, UNK
  4. PREDNISOLONE [Concomitant]
     Indication: ASTHMA
     Route: 048
  5. SUXAMETHONIUM [Concomitant]
     Dosage: 100 MG, UNK
  6. FENTANYL [Concomitant]
     Dosage: 500 UG, UNK
  7. OXYTOCIN [Concomitant]
     Dosage: 5 UNITS, UNK
     Route: 042
  8. OXYTOCIN [Concomitant]
     Dosage: 15 UNITS, UNK
     Route: 042
  9. MORPHINE [Concomitant]
     Dosage: 5 MG, UNK
     Route: 042
  10. ATRACURIUM BESYLATE [Concomitant]
     Dosage: 20 MG, UNK
     Route: 042
  11. ISOFLURANE [Concomitant]
  12. EPHEDRINE SUL CAP [Concomitant]
     Dosage: 21 MG, UNK
  13. METARAMINOL [Concomitant]
     Dosage: 1 MG, UNK
  14. DOPAMINE HCL [Concomitant]

REACTIONS (21)
  - ABDOMINAL PAIN UPPER [None]
  - AKINESIA [None]
  - ANXIETY [None]
  - CARDIAC DISORDER [None]
  - CARDIOMEGALY [None]
  - CARDIOMYOPATHY [None]
  - CHEST PAIN [None]
  - COUGH [None]
  - DIZZINESS [None]
  - DRUG EXPOSURE DURING PREGNANCY [None]
  - DYSKINESIA [None]
  - EJECTION FRACTION DECREASED [None]
  - EMOTIONAL DISTRESS [None]
  - MITRAL VALVE INCOMPETENCE [None]
  - NAUSEA [None]
  - OEDEMA PERIPHERAL [None]
  - SINUS RHYTHM [None]
  - TACHYCARDIA [None]
  - THROMBOSIS [None]
  - TRICUSPID VALVE INCOMPETENCE [None]
  - VENTRICULAR DYSFUNCTION [None]
